FAERS Safety Report 7864412-6 (Version None)
Quarter: 2011Q4

REPORT INFORMATION
  Report Type: 
  Country: None (occurrence: None)
  Receive Date: 20111028
  Receipt Date: 20111018
  Transmission Date: 20120403
  Serious: Yes (Other)
  Sender: FDA-Public Use
  Company Number: PHEH2011US01253

PATIENT
  Sex: Male
  Weight: 76.19 kg

DRUGS (2)
  1. EXJADE [Suspect]
     Indication: SICKLE CELL ANAEMIA
     Dosage: 1500 MG, DAILY
     Route: 048
     Dates: start: 20080912
  2. EXJADE [Suspect]
     Indication: IRON OVERLOAD

REACTIONS (15)
  - BLOOD BILIRUBIN INCREASED [None]
  - BLOOD GLUCOSE INCREASED [None]
  - BLOOD POTASSIUM INCREASED [None]
  - MONOCYTE COUNT INCREASED [None]
  - BLOOD URIC ACID INCREASED [None]
  - SERUM FERRITIN INCREASED [None]
  - BLOOD LACTATE DEHYDROGENASE INCREASED [None]
  - ASPARTATE AMINOTRANSFERASE INCREASED [None]
  - HAEMOGLOBIN DECREASED [None]
  - BLOOD PRESSURE DIASTOLIC DECREASED [None]
  - HAEMATOCRIT DECREASED [None]
  - DIARRHOEA [None]
  - LYMPHOCYTE COUNT INCREASED [None]
  - RED BLOOD CELL COUNT DECREASED [None]
  - WHITE BLOOD CELL COUNT INCREASED [None]
